FAERS Safety Report 7337692-3 (Version None)
Quarter: 2011Q1

REPORT INFORMATION
  Report Type: 
  Country: None (occurrence: None)
  Receive Date: 20110308
  Receipt Date: 20110228
  Transmission Date: 20110831
  Serious: Yes (Life-Threatening, Hospitalization)
  Sender: FDA-Public Use
  Company Number: JP-ASTRAZENECA-2010SE59917

PATIENT
  Age: 84 Year
  Sex: Male

DRUGS (12)
  1. GASMOTIN [Concomitant]
     Route: 048
     Dates: end: 20101108
  2. LEVOFLOXACIN [Concomitant]
     Route: 048
     Dates: end: 20101108
  3. MEILAX [Concomitant]
     Route: 048
     Dates: end: 20101108
  4. ADOAIR [Concomitant]
     Route: 055
  5. SALOBEL [Suspect]
     Indication: HYPERURICAEMIA
     Route: 048
     Dates: end: 20101108
  6. HARNAL D [Suspect]
     Route: 048
     Dates: end: 20101108
  7. GLYCORAN [Concomitant]
     Route: 048
     Dates: start: 20100801, end: 20101108
  8. THEO-DUR [Concomitant]
     Route: 048
     Dates: end: 20101108
  9. LENDORMIN [Concomitant]
     Route: 048
     Dates: end: 20101108
  10. MAGMITT [Concomitant]
     Route: 048
     Dates: end: 20101108
  11. OMEPRAZON [Suspect]
     Indication: GASTRITIS
     Route: 048
     Dates: start: 20101003, end: 20101108
  12. METFORMIN HCL [Concomitant]
     Route: 048
     Dates: end: 20101108

REACTIONS (2)
  - DRUG ERUPTION [None]
  - PNEUMONIA [None]
